FAERS Safety Report 10424713 (Version 3)
Quarter: 2014Q3

REPORT INFORMATION
  Report Type: Spontaneous
  Country: NO (occurrence: NO)
  Receive Date: 20140902
  Receipt Date: 20140923
  Transmission Date: 20150326
  Serious: Yes (Hospitalization)
  Sender: FDA-Public Use
  Company Number: NO-SA-2014SA114670

PATIENT
  Age: 65 Year
  Sex: Female
  Weight: 110 kg

DRUGS (9)
  1. CODEINE [Concomitant]
     Active Substance: CODEINE
     Dates: start: 20140516, end: 20140520
  2. XARELTO [Suspect]
     Active Substance: RIVAROXABAN
     Indication: EMBOLISM VENOUS
     Route: 065
     Dates: start: 20140620, end: 20140719
  3. HYDROCHLOROTHIAZIDE. [Concomitant]
     Active Substance: HYDROCHLOROTHIAZIDE
     Dates: start: 1999
  4. PANTOPRAZOLE SODIUM [Concomitant]
     Active Substance: PANTOPRAZOLE SODIUM
     Dates: start: 2008
  5. PARACETAMOL [Concomitant]
     Active Substance: ACETAMINOPHEN
     Dates: start: 20140516, end: 20140520
  6. XARELTO [Suspect]
     Active Substance: RIVAROXABAN
     Indication: EMBOLISM VENOUS
     Route: 065
     Dates: start: 20140307, end: 20140310
  7. ATORVASTATIN CALCIUM. [Concomitant]
     Active Substance: ATORVASTATIN CALCIUM
     Dates: start: 2008
  8. KLEXANE [Suspect]
     Active Substance: ENOXAPARIN
     Indication: EMBOLISM VENOUS
     Route: 042
     Dates: start: 20140310, end: 20140619
  9. VITAMIN K [Concomitant]
     Active Substance: PHYTONADIONE
     Indication: EMBOLISM VENOUS
     Dates: start: 1984

REACTIONS (4)
  - Epistaxis [Recovered/Resolved]
  - Post procedural haematoma [Recovered/Resolved]
  - Arthralgia [Recovered/Resolved]
  - Contusion [Recovering/Resolving]

NARRATIVE: CASE EVENT DATE: 20140312
